FAERS Safety Report 17942326 (Version 1)
Quarter: 2020Q2

REPORT INFORMATION
  Report Type: Spontaneous
  Country: US (occurrence: US)
  Receive Date: 20200625
  Receipt Date: 20200625
  Transmission Date: 20200714
  Serious: No
  Sender: FDA-Public Use
  Company Number: None

PATIENT
  Age: 73 Year
  Sex: Male
  Weight: 86.18 kg

DRUGS (2)
  1. LUPRON [Suspect]
     Active Substance: LEUPROLIDE ACETATE
     Route: 030
  2. LUPRON [Concomitant]
     Active Substance: LEUPROLIDE ACETATE

REACTIONS (3)
  - Back pain [None]
  - Pain in extremity [None]
  - Blood urine present [None]

NARRATIVE: CASE EVENT DATE: 20200521
